FAERS Safety Report 8982375 (Version 1)
Quarter: 2012Q4

REPORT INFORMATION
  Report Type: 
  Country: US (occurrence: US)
  Receive Date: 20121212
  Receipt Date: 20121212
  Transmission Date: 20130627
  Serious: Yes (Other)
  Sender: FDA-Public Use
  Company Number: US-ASTELLAS-1113830

PATIENT
  Sex: Female

DRUGS (1)
  1. TARCEVA [Suspect]
     Indication: MALIGNANT RESPIRATORY TRACT NEOPLASM
     Dosage: STOPPED ON 19 MAY
     Route: 065

REACTIONS (3)
  - Neoplasm [Unknown]
  - Rash [Unknown]
  - Diarrhoea [Unknown]
